FAERS Safety Report 15369124 (Version 1)
Quarter: 2018Q3

REPORT INFORMATION
  Report Type: Spontaneous
  Country: GB (occurrence: GB)
  Receive Date: 20180911
  Receipt Date: 20180911
  Transmission Date: 20181010
  Serious: Yes (Other)
  Sender: FDA-Public Use
  Company Number: GB-SUN PHARMACEUTICAL INDUSTRIES LTD-2018RR-184034

PATIENT
  Age: 34 Year
  Sex: Male
  Weight: 134 kg

DRUGS (1)
  1. ISOTRETINOIN. [Suspect]
     Active Substance: ISOTRETINOIN
     Indication: FOLLICULITIS
     Dosage: 80 MG, DAILY
     Route: 048
     Dates: start: 20180621, end: 20180808

REACTIONS (1)
  - Ulcerative keratitis [Recovering/Resolving]
